FAERS Safety Report 22154083 (Version 3)
Quarter: 2023Q2

REPORT INFORMATION
  Report Type: Spontaneous
  Country: US (occurrence: US)
  Receive Date: 20230330
  Receipt Date: 20230502
  Transmission Date: 20230721
  Serious: Yes (Other)
  Sender: FDA-Public Use
  Company Number: US-CELLTRION INC.-2023US006406

PATIENT

DRUGS (8)
  1. TRUXIMA [Suspect]
     Active Substance: RITUXIMAB-ABBS
     Indication: Multiple sclerosis
     Dosage: 1000 MG ON DAY 1 AND DAY 15
  2. TRUXIMA [Suspect]
     Active Substance: RITUXIMAB-ABBS
     Dosage: UNK EVERY SIX MONTHS
     Dates: start: 202110
  3. TRUXIMA [Suspect]
     Active Substance: RITUXIMAB-ABBS
     Dosage: UNK EVERY SIX MONTHS
     Dates: start: 202204
  4. TRUXIMA [Suspect]
     Active Substance: RITUXIMAB-ABBS
     Dosage: UNK EVERY SIX MONTHS
     Dates: start: 202210
  5. MINOXIDIL [Concomitant]
     Active Substance: MINOXIDIL
  6. LEXAPRO [Concomitant]
     Active Substance: ESCITALOPRAM OXALATE
  7. XANAX [Concomitant]
     Active Substance: ALPRAZOLAM
  8. VITAMIN D3 [Concomitant]
     Active Substance: CHOLECALCIFEROL

REACTIONS (5)
  - Multiple sclerosis [Unknown]
  - Blister [Recovered/Resolved]
  - Insurance issue [Unknown]
  - Off label use [Unknown]
  - Therapy interrupted [Unknown]
